FAERS Safety Report 16846965 (Version 1)
Quarter: 2019Q3

REPORT INFORMATION
  Report Type: Spontaneous
  Country: US (occurrence: US)
  Receive Date: 20190924
  Receipt Date: 20190924
  Transmission Date: 20191005
  Serious: No
  Sender: FDA-Public Use
  Company Number: US-ASSERTIO THERAPEUTICS, INC.-US-2019DEP000415

PATIENT
  Age: 66 Year
  Sex: Female
  Weight: 62.59 kg

DRUGS (1)
  1. GRALISE [Suspect]
     Active Substance: GABAPENTIN
     Indication: MENINGIOMA BENIGN
     Dosage: 600 MG, QD
     Route: 048
     Dates: start: 201904

REACTIONS (3)
  - Product label issue [Unknown]
  - Drug titration error [Unknown]
  - Product use in unapproved indication [Unknown]

NARRATIVE: CASE EVENT DATE: 201904
